FAERS Safety Report 17089620 (Version 1)
Quarter: 2019Q4

REPORT INFORMATION
  Report Type: Spontaneous
  Country: US (occurrence: US)
  Receive Date: 20191030
  Receipt Date: 20191030
  Transmission Date: 20200122
  Serious: Yes (Other)
  Sender: FDA-Public Use
  Company Number: None

PATIENT
  Age: 13 Year
  Sex: Male
  Weight: 56.7 kg

DRUGS (3)
  1. ROBITUSSIN (GUAIFENESIN) [Concomitant]
     Active Substance: GUAIFENESIN
  2. TAMIFLU [Suspect]
     Active Substance: OSELTAMIVIR PHOSPHATE
     Indication: INFLUENZA
     Dosage: ?          QUANTITY:1 DF DOSAGE FORM;?
     Route: 048
     Dates: end: 20170119
  3. DELSYM [Concomitant]
     Active Substance: DEXTROMETHORPHAN

REACTIONS (8)
  - Hallucination, visual [None]
  - Palpitations [None]
  - Somnolence [None]
  - Inappropriate affect [None]
  - Auditory disorder [None]
  - Hypotension [None]
  - Restless legs syndrome [None]
  - Paranoia [None]

NARRATIVE: CASE EVENT DATE: 20170115
